FAERS Safety Report 4835828-7 (Version None)
Quarter: 2005Q4

REPORT INFORMATION
  Report Type: 
  Country: None (occurrence: None)
  Receive Date: 20051117
  Receipt Date: 20051018
  Transmission Date: 20060501
  Serious: Yes (Hospitalization)
  Sender: FDA-Public Use
  Company Number: 200510661BNE

PATIENT
  Age: 91 Year
  Sex: Male

DRUGS (8)
  1. CIPROFLOXACIN [Suspect]
     Indication: URINARY TRACT INFECTION
     Dosage: 500 MG, BID, ORAL
     Route: 048
     Dates: start: 20050921, end: 20050926
  2. SIMVASTATIN [Concomitant]
  3. ASPIRIN [Concomitant]
  4. CEFTRIAXONE [Concomitant]
  5. CEPHALEXIN [Concomitant]
  6. DIPYRIDAMOLE [Concomitant]
  7. ATENOLOL [Concomitant]
  8. BENDROFLUAZIDE [Concomitant]

REACTIONS (2)
  - CIRCULATORY COLLAPSE [None]
  - VENTRICULAR TACHYCARDIA [None]
